FAERS Safety Report 23523537 (Version 1)
Quarter: 2024Q1

REPORT INFORMATION
  Report Type: Spontaneous
  Country: US (occurrence: None)
  Receive Date: 20240214
  Receipt Date: 20240214
  Transmission Date: 20240410
  Serious: Yes (Hospitalization)
  Sender: FDA-Public Use
  Company Number: None

PATIENT
  Sex: Female

DRUGS (10)
  1. AMBRISENTAN [Suspect]
     Active Substance: AMBRISENTAN
     Indication: Pulmonary arterial hypertension
     Dosage: FREQUENCY : DAILY;?
     Route: 048
  2. MOTRIN [Concomitant]
     Active Substance: IBUPROFEN
  3. LISINOPRIL/HYDROCHLOROTHI [Concomitant]
  4. FUROSEMIDE [Concomitant]
     Active Substance: FUROSEMIDE
  5. VITAMINS [Concomitant]
     Active Substance: VITAMINS
  6. SILDENAFIL [Concomitant]
     Active Substance: SILDENAFIL
  7. DIGOXIN [Concomitant]
     Active Substance: DIGOXIN
  8. ALBUTEROL SULFATE [Concomitant]
     Active Substance: ALBUTEROL SULFATE
  9. POTASSIUM CHLORIDE [Concomitant]
     Active Substance: POTASSIUM CHLORIDE
  10. AMLODIPINE BESYLATE [Concomitant]
     Active Substance: AMLODIPINE BESYLATE

REACTIONS (1)
  - Pneumonia [None]
